FAERS Safety Report 5515914-9 (Version None)
Quarter: 2007Q4

REPORT INFORMATION
  Report Type: 
  Country: None (occurrence: None)
  Receive Date: 20071114
  Receipt Date: 20071106
  Transmission Date: 20080405
  Serious: Yes (Other)
  Sender: FDA-Public Use
  Company Number: BR-ASTRAZENECA-2007UW25791

PATIENT
  Age: 59 Year
  Sex: Female

DRUGS (5)
  1. BUDECORT [Suspect]
     Indication: SINUSITIS
     Route: 055
     Dates: start: 20061101
  2. LOSARTAN POTASSIUM [Concomitant]
     Indication: HYPERTENSION
     Route: 048
  3. HYDROCLORITIAZIDA [Concomitant]
     Indication: DIURETIC THERAPY
     Route: 048
  4. CALCIUM [Concomitant]
     Route: 048
     Dates: start: 20070401
  5. OMEPRAZOLE [Concomitant]
     Indication: GASTRITIS
     Route: 048

REACTIONS (1)
  - DENGUE FEVER [None]
